FAERS Safety Report 11758328 (Version 1)
Quarter: 2015Q4

REPORT INFORMATION
  Report Type: Spontaneous
  Country: IE (occurrence: None)
  Receive Date: 20151118
  Receipt Date: 20151118
  Transmission Date: 20160304
  Serious: Yes (Disabling)
  Sender: FDA-Public Use
  Company Number: None

PATIENT
  Age: 51 Year
  Sex: Female
  Weight: 76.2 kg

DRUGS (1)
  1. ARMOUR THYROID [Suspect]
     Active Substance: THYROID, PORCINE\THYROID, UNSPECIFIED
     Indication: HYPOTHYROIDISM
     Dosage: 2 PILLS / 120MG TOTAL
     Route: 048

REACTIONS (12)
  - Anxiety [None]
  - Pruritus [None]
  - Gastrointestinal disorder [None]
  - Dry eye [None]
  - Product odour abnormal [None]
  - Weight increased [None]
  - Pain [None]
  - Product formulation issue [None]
  - Eye pain [None]
  - Blood thyroid stimulating hormone decreased [None]
  - Feeling abnormal [None]
  - Fatigue [None]

NARRATIVE: CASE EVENT DATE: 20151117
